FAERS Safety Report 21125470 (Version 3)
Quarter: 2022Q3

REPORT INFORMATION
  Report Type: Report from Study
  Country: CO (occurrence: CO)
  Receive Date: 20220725
  Receipt Date: 20220824
  Transmission Date: 20221027
  Serious: Yes (Hospitalization, Other)
  Sender: FDA-Public Use
  Company Number: CO-NOVARTISPH-NVSC2022CO167021

PATIENT
  Sex: Female

DRUGS (1)
  1. ELTROMBOPAG OLAMINE [Suspect]
     Active Substance: ELTROMBOPAG OLAMINE
     Indication: Immune thrombocytopenia
     Dosage: 50 MG, QD
     Route: 048

REACTIONS (6)
  - Haemoglobin decreased [Unknown]
  - Affective disorder [Unknown]
  - Malaise [Unknown]
  - Platelet count decreased [Unknown]
  - Musculoskeletal chest pain [Unknown]
  - Pulmonary oedema [Recovering/Resolving]
